FAERS Safety Report 26071926 (Version 2)
Quarter: 2025Q4

REPORT INFORMATION
  Report Type: Report from Study
  Country: US (occurrence: US)
  Receive Date: 20251120
  Receipt Date: 20251208
  Transmission Date: 20260117
  Serious: Yes (Hospitalization)
  Sender: IPSEN BIOPHARMACEUTICALS, INC.
  Company Number: US-IPSEN Group, Research and Development-2025-28375

PATIENT
  Age: 71 Year
  Sex: Female
  Weight: 63 kg

DRUGS (13)
  1. ONIVYDE [Suspect]
     Active Substance: IRINOTECAN HYDROCHLORIDE
     Indication: Product used for unknown indication
     Route: 065
     Dates: start: 20250927, end: 20251112
  2. ONIVYDE [Suspect]
     Active Substance: IRINOTECAN HYDROCHLORIDE
     Dosage: 32.5MG/M^2
     Route: 065
  3. FLUOROURACIL [Suspect]
     Active Substance: FLUOROURACIL
     Indication: Product used for unknown indication
     Dates: start: 20250927, end: 20251027
  4. FLUOROURACIL [Suspect]
     Active Substance: FLUOROURACIL
  5. OXALIPLATIN [Suspect]
     Active Substance: OXALIPLATIN
     Indication: Product used for unknown indication
     Dates: start: 20250927, end: 20251027
  6. OXALIPLATIN [Suspect]
     Active Substance: OXALIPLATIN
  7. LEUCOVORIN CALCIUM [Suspect]
     Active Substance: LEUCOVORIN CALCIUM
     Indication: Product used for unknown indication
     Dosage: 670MG/67ML
     Dates: start: 20250927, end: 20251027
  8. LEUCOVORIN CALCIUM [Suspect]
     Active Substance: LEUCOVORIN CALCIUM
  9. MAGNESIUM SULFATE [Concomitant]
     Active Substance: MAGNESIUM SULFATE
     Indication: Blood magnesium decreased
     Dates: start: 20251108, end: 20251108
  10. POTASSIUM CHLORIDE [Concomitant]
     Active Substance: POTASSIUM CHLORIDE
     Indication: Dehydration
     Dates: start: 20251108, end: 20251110
  11. SODIUM CHLORIDE [Concomitant]
     Active Substance: SODIUM CHLORIDE
     Indication: Dehydration
     Dosage: CONTINUOUS INFUSION?FIRST RATE CHANGE WAS 75 ML/HR AND THE SECOND WAS TO 20 ML/HR
     Dates: start: 20251108, end: 20251111
  12. MORPHINE [Concomitant]
     Active Substance: MORPHINE
     Indication: Pain
     Dates: start: 20251108, end: 20251108
  13. CEFTRIAXONE [Concomitant]
     Active Substance: CEFTRIAXONE
     Indication: Haematological infection
     Dosage: IN AM
     Dates: start: 20251112, end: 20251123

REACTIONS (2)
  - Colitis [Recovered/Resolved]
  - Sepsis [Unknown]

NARRATIVE: CASE EVENT DATE: 20251108
